FAERS Safety Report 4514278-7 (Version None)
Quarter: 2004Q4

REPORT INFORMATION
  Report Type: 
  Country: None (occurrence: None)
  Receive Date: 20041124
  Receipt Date: 20041104
  Transmission Date: 20050328
  Serious: Yes (Life-Threatening, Hospitalization)
  Sender: FDA-Public Use
  Company Number: CA_041107417

PATIENT
  Age: 52 Year
  Sex: Male
  Weight: 93 kg

DRUGS (3)
  1. ZYPREXA [Suspect]
     Indication: SCHIZOPHRENIA, PARANOID TYPE
     Dosage: 15 MG
  2. LOXAPINE SUCCINATE [Concomitant]
  3. KEMADRIN [Concomitant]

REACTIONS (2)
  - BREAST CANCER MALE [None]
  - METASTASES TO LYMPH NODES [None]
